FAERS Safety Report 25539557 (Version 2)
Quarter: 2025Q3

REPORT INFORMATION
  Report Type: Spontaneous
  Country: US (occurrence: US)
  Receive Date: 20250710
  Receipt Date: 20250809
  Transmission Date: 20251020
  Serious: Yes (Hospitalization)
  Sender: ALEXION PHARMACEUTICALS
  Company Number: US-AstraZeneca-CH-00903161A

PATIENT
  Age: 56 Year
  Sex: Female
  Weight: 133.35 kg

DRUGS (2)
  1. FASENRA [Suspect]
     Active Substance: BENRALIZUMAB
     Indication: Asthma
     Dosage: 30 MILLIGRAM, Q8W
     Dates: start: 20250204
  2. FASENRA [Suspect]
     Active Substance: BENRALIZUMAB

REACTIONS (2)
  - Peripheral swelling [Unknown]
  - Erythema [Unknown]

NARRATIVE: CASE EVENT DATE: 20250501
